FAERS Safety Report 4337493-4 (Version None)
Quarter: 2004Q2

REPORT INFORMATION
  Report Type: 
  Country: None (occurrence: None)
  Receive Date: 20040412
  Receipt Date: 20040412
  Transmission Date: 20050107
  Serious: Yes (Other)
  Sender: FDA-Public Use
  Company Number: None

PATIENT
  Sex: Male
  Weight: 102.0593 kg

DRUGS (3)
  1. PAXIL [Suspect]
     Indication: ANXIETY
     Dosage: 10 MG 1 DAILY ORAL
     Route: 048
     Dates: start: 19960501, end: 20040131
  2. PAXIL [Suspect]
     Indication: DEPRESSION
     Dosage: 10 MG 1 DAILY ORAL
     Route: 048
     Dates: start: 19960501, end: 20040131
  3. PAROXETIN 10 MG [Suspect]
     Dates: start: 20040201, end: 20040409

REACTIONS (1)
  - DRUG WITHDRAWAL SYNDROME [None]
